FAERS Safety Report 5009484-1 (Version None)
Quarter: 2006Q2

REPORT INFORMATION
  Report Type: 
  Country: None (occurrence: None)
  Receive Date: 20060522
  Receipt Date: 20060509
  Transmission Date: 20061013
  Serious: Yes (Hospitalization, Disabling, Other)
  Sender: FDA-Public Use
  Company Number: 2006063568

PATIENT
  Age: 59 Year
  Sex: Male

DRUGS (2)
  1. CELEBREX [Suspect]
     Indication: ARTHRITIS
     Dosage: 200 MG (100 MG, 2 IN 1 D),
     Dates: start: 19990101, end: 20020101
  2. CELEBREX [Suspect]
     Indication: PAIN
     Dosage: 200 MG (100 MG, 2 IN 1 D),
     Dates: start: 19990101, end: 20020101

REACTIONS (7)
  - ANGINA PECTORIS [None]
  - ANXIETY [None]
  - CARDIAC FAILURE [None]
  - CARDIAC OPERATION [None]
  - FAECES DISCOLOURED [None]
  - GASTRIC DISORDER [None]
  - INSOMNIA [None]
